FAERS Safety Report 7167075-0 (Version None)
Quarter: 2010Q4

REPORT INFORMATION
  Report Type: 
  Country: None (occurrence: None)
  Receive Date: 20101216
  Receipt Date: 20101213
  Transmission Date: 20110411
  Serious: Yes (Other)
  Sender: FDA-Public Use
  Company Number: US-BAYER-2010-004627

PATIENT
  Sex: Female

DRUGS (3)
  1. YASMIN [Suspect]
     Dosage: UNK
     Dates: start: 20020101, end: 20090101
  2. OCELLA [Suspect]
     Dosage: UNK
     Dates: start: 20020101, end: 20090101
  3. YAZ [Suspect]
     Dosage: UNK
     Dates: start: 20020101, end: 20090101

REACTIONS (6)
  - ANXIETY [None]
  - CHOLECYSTECTOMY [None]
  - EMOTIONAL DISTRESS [None]
  - GALLBLADDER DISORDER [None]
  - INJURY [None]
  - PAIN [None]
